FAERS Safety Report 25319264 (Version 1)
Quarter: 2025Q2

REPORT INFORMATION
  Report Type: Spontaneous
  Country: US (occurrence: None)
  Receive Date: 20250514
  Receipt Date: 20250514
  Transmission Date: 20250716
  Serious: Yes (Other)
  Sender: FDA-CTU
  Company Number: None

PATIENT
  Sex: Male
  Weight: 161.55 kg

DRUGS (6)
  1. WEGOVY [Suspect]
     Active Substance: SEMAGLUTIDE
     Indication: Weight decreased
     Dates: start: 20250327, end: 20250509
  2. DEVICE [Concomitant]
     Active Substance: DEVICE
  3. ATORVASTATIN [Concomitant]
     Active Substance: ATORVASTATIN
  4. ZYRTEC [Concomitant]
     Active Substance: CETIRIZINE HYDROCHLORIDE
  5. PROZAC [Concomitant]
     Active Substance: FLUOXETINE HYDROCHLORIDE
  6. BUSPAR [Concomitant]
     Active Substance: BUSPIRONE HYDROCHLORIDE

REACTIONS (6)
  - Diarrhoea [None]
  - Abdominal pain upper [None]
  - Impaired work ability [None]
  - Vomiting [None]
  - Faeces discoloured [None]
  - Oropharyngeal pain [None]
